FAERS Safety Report 17444980 (Version 2)
Quarter: 2020Q2

REPORT INFORMATION
  Report Type: Report from Study
  Country: US (occurrence: US)
  Receive Date: 20200221
  Receipt Date: 20200403
  Transmission Date: 20200713
  Serious: Yes (Hospitalization)
  Sender: FDA-Public Use
  Company Number: US-EISAI MEDICAL RESEARCH-EC-2019-052373

PATIENT
  Age: 69 Year
  Sex: Female

DRUGS (5)
  1. LENVIMA [Suspect]
     Active Substance: LENVATINIB
     Route: 048
     Dates: start: 20191213
  2. LENVIMA [Suspect]
     Active Substance: LENVATINIB
     Indication: RENAL CANCER
     Route: 048
     Dates: start: 20190130, end: 20190225
  3. LENVIMA [Suspect]
     Active Substance: LENVATINIB
     Route: 048
     Dates: start: 20190226, end: 201908
  4. LENVIMA [Suspect]
     Active Substance: LENVATINIB
     Route: 048
     Dates: start: 2019, end: 20191031
  5. LENVIMA [Suspect]
     Active Substance: LENVATINIB
     Route: 048
     Dates: start: 20200220, end: 202003

REACTIONS (10)
  - Diarrhoea [Not Recovered/Not Resolved]
  - Pulmonary congestion [Recovering/Resolving]
  - Blood pressure fluctuation [Not Recovered/Not Resolved]
  - Gout [Not Recovered/Not Resolved]
  - Proteinuria [Not Recovered/Not Resolved]
  - Bronchitis [Recovering/Resolving]
  - Hypertension [Recovered/Resolved]
  - Renal impairment [Not Recovered/Not Resolved]
  - Pyrexia [Recovering/Resolving]
  - Pancreatitis [Not Recovered/Not Resolved]

NARRATIVE: CASE EVENT DATE: 2019
